FAERS Safety Report 7183982-7 (Version None)
Quarter: 2010Q4

REPORT INFORMATION
  Report Type: 
  Country: None (occurrence: None)
  Receive Date: 20101222
  Receipt Date: 20101217
  Transmission Date: 20110411
  Serious: Yes (Other)
  Sender: FDA-Public Use
  Company Number: JP-BRISTOL-MYERS SQUIBB COMPANY-15441041

PATIENT
  Age: 49 Year
  Sex: Male

DRUGS (6)
  1. ATAZANAVIR [Suspect]
     Indication: HIV INFECTION
  2. CISPLATIN [Suspect]
     Indication: LUNG CANCER METASTATIC
     Dosage: CISPLATIN 80MG/M2 GIVEN ON DAY 1 DURING 21 DAY CYCLE, DOSE REDUCED TO 60MG/M2
  3. RITONAVIR [Suspect]
     Indication: HIV INFECTION
  4. GEMCITABINE [Suspect]
     Indication: LUNG CANCER METASTATIC
     Dosage: 1000MG/M2 GIVEN ON DAY 1 AND 8 DURING 21 DAY CYCLE,DOSE REDUCED TO 800MG/M2
  5. TENOFOVIR DISOPROXIL FUMARATE [Suspect]
     Indication: HIV INFECTION
  6. LAMIVUDINE [Suspect]
     Indication: HIV INFECTION

REACTIONS (5)
  - CEREBRAL HAEMORRHAGE [None]
  - DECREASED APPETITE [None]
  - HAEMATOTOXICITY [None]
  - LUNG NEOPLASM MALIGNANT [None]
  - PLATELET TOXICITY [None]
